FAERS Safety Report 5466927-7 (Version None)
Quarter: 2007Q3

REPORT INFORMATION
  Report Type: 
  Country: None (occurrence: None)
  Receive Date: 20070920
  Receipt Date: 20070904
  Transmission Date: 20080115
  Serious: Yes (Hospitalization)
  Sender: FDA-Public Use
  Company Number: A-JP2007-14378

PATIENT
  Age: 57 Year
  Sex: Female

DRUGS (5)
  1. TRACLEER [Suspect]
     Indication: PULMONARY HYPERTENSION
     Dosage: 125 MG, QD, ORAL; ORAL
     Route: 048
     Dates: start: 20060419, end: 20070220
  2. TRACLEER [Suspect]
     Indication: PULMONARY HYPERTENSION
     Dosage: 125 MG, QD, ORAL; ORAL
     Route: 048
     Dates: start: 20070222
  3. DOMPERIDONE (DOMPERIDONE) [Concomitant]
  4. TOCOPHERYL NICOTINATE (TOCOPHERYL NICOTINATE) [Concomitant]
  5. FAMOTIDINE [Concomitant]

REACTIONS (1)
  - ANAEMIA [None]
